FAERS Safety Report 16989555 (Version 1)
Quarter: 2019Q4

REPORT INFORMATION
  Report Type: Spontaneous
  Country: CA (occurrence: CA)
  Receive Date: 20191104
  Receipt Date: 20191104
  Transmission Date: 20200122
  Serious: Yes (Other)
  Sender: FDA-Public Use
  Company Number: CA-PFIZER INC-2019467181

PATIENT
  Age: 68 Year
  Sex: Female

DRUGS (8)
  1. LOPERAMIDE [Concomitant]
     Active Substance: LOPERAMIDE
     Dosage: UNK
  2. FUROSEMIDE. [Concomitant]
     Active Substance: FUROSEMIDE
     Dosage: UNK
  3. OSCAL 500-D [Concomitant]
     Dosage: UNK
  4. DILAUDID [Concomitant]
     Active Substance: HYDROMORPHONE HYDROCHLORIDE
     Dosage: UNK
  5. ATIVAN [Suspect]
     Active Substance: LORAZEPAM
     Indication: ANXIETY
     Dosage: 1 MG, 4X/DAY
     Route: 048
  6. ASAPHEN [Concomitant]
     Active Substance: ASPIRIN
     Dosage: UNK
  7. CYANOCOBALAMIN. [Concomitant]
     Active Substance: CYANOCOBALAMIN
     Dosage: UNK
  8. DERMAFLEX-20 [Concomitant]
     Dosage: UNK

REACTIONS (3)
  - Urinary retention [Unknown]
  - Therapeutic product effect decreased [Unknown]
  - Urinary incontinence [Unknown]
